FAERS Safety Report 11138225 (Version 1)
Quarter: 2015Q2

REPORT INFORMATION
  Report Type: Spontaneous
  Country: US (occurrence: US)
  Receive Date: 20150526
  Receipt Date: 20150526
  Transmission Date: 20150821
  Serious: No
  Sender: FDA-Public Use
  Company Number: US-VIVUS-2015V1000090

PATIENT
  Age: 67 Year
  Sex: Male
  Weight: 65.83 kg

DRUGS (4)
  1. STENDRA [Suspect]
     Active Substance: AVANAFIL
     Route: 048
  2. TESTIM [Concomitant]
     Active Substance: TESTOSTERONE
  3. STENDRA [Suspect]
     Active Substance: AVANAFIL
     Indication: ERECTILE DYSFUNCTION
     Route: 048
     Dates: start: 2014
  4. ANTITHROMBOTIC AGENTS [Concomitant]
     Active Substance: UNSPECIFIED INGREDIENT

REACTIONS (1)
  - Drug ineffective [Not Recovered/Not Resolved]
